FAERS Safety Report 9335182 (Version 2)
Quarter: 2013Q2

REPORT INFORMATION
  Report Type: Spontaneous
  Country: JP (occurrence: JP)
  Receive Date: 20130606
  Receipt Date: 20130619
  Transmission Date: 20140414
  Serious: Yes (Other)
  Sender: FDA-Public Use
  Company Number: JP-GLAXOSMITHKLINE-B0894529A

PATIENT
  Age: 29 Year
  Sex: Male

DRUGS (17)
  1. LAMICTAL [Suspect]
     Indication: BIPOLAR II DISORDER
     Dosage: 25MG ALTERNATE DAYS
     Route: 048
     Dates: start: 20130423, end: 20130429
  2. LAMICTAL [Suspect]
     Indication: BIPOLAR II DISORDER
     Dosage: 25MG PER DAY
     Route: 048
     Dates: start: 20130430, end: 20130506
  3. LAMICTAL [Suspect]
     Indication: BIPOLAR II DISORDER
     Dosage: 50MG PER DAY
     Route: 048
     Dates: start: 20130507, end: 20130513
  4. LAMICTAL [Suspect]
     Indication: BIPOLAR II DISORDER
     Dosage: 75MG PER DAY
     Route: 048
     Dates: start: 20130514, end: 20130527
  5. LAMICTAL [Suspect]
     Indication: BIPOLAR II DISORDER
     Dosage: 100MG PER DAY
     Route: 048
     Dates: start: 20130528
  6. JZOLOFT [Concomitant]
     Indication: DEPRESSION
     Dosage: 25MG PER DAY
     Route: 048
     Dates: start: 20081111, end: 20130512
  7. AMOXAN [Concomitant]
     Indication: DEPRESSION
     Dosage: 50MG TWICE PER DAY
     Route: 048
     Dates: start: 20100329, end: 20130507
  8. AMOXAN [Concomitant]
     Indication: DEPRESSION
     Dosage: 25MG PER DAY
     Route: 048
     Dates: start: 20130512
  9. RIVOTRIL [Concomitant]
     Dosage: 1MG TWICE PER DAY
     Route: 048
     Dates: start: 201201
  10. HALCION [Concomitant]
     Indication: SLEEP DISORDER
     Dosage: .25MG PER DAY
     Route: 048
     Dates: start: 200811
  11. SILECE [Concomitant]
     Indication: SLEEP DISORDER
     Dosage: 1MG PER DAY
     Route: 048
     Dates: start: 200811, end: 20130520
  12. SILECE [Concomitant]
     Indication: SLEEP DISORDER
     Dosage: 2MG PER DAY
     Route: 048
     Dates: start: 20130521
  13. MYSLEE [Concomitant]
     Indication: SLEEP DISORDER
     Dosage: 5MG PER DAY
     Route: 048
     Dates: start: 200811, end: 20130520
  14. MYSLEE [Concomitant]
     Indication: SLEEP DISORDER
     Dosage: 10MG PER DAY
     Route: 048
     Dates: start: 20130521
  15. DEPAS [Concomitant]
     Indication: SLEEP DISORDER
     Dosage: .5MG PER DAY
     Route: 048
     Dates: start: 200811
  16. TETRAMIDE [Concomitant]
     Indication: SLEEP DISORDER
     Dosage: 20MG PER DAY
     Route: 048
     Dates: start: 200811
  17. SENNARIDE [Concomitant]
     Indication: CONSTIPATION
     Dosage: 24MG PER DAY
     Route: 048
     Dates: start: 200811

REACTIONS (28)
  - Suicidal ideation [Recovered/Resolved]
  - Rash [Recovered/Resolved]
  - Upper respiratory tract inflammation [Not Recovered/Not Resolved]
  - Pyrexia [Recovering/Resolving]
  - Oropharyngeal pain [Recovering/Resolving]
  - Productive cough [Unknown]
  - Headache [Recovering/Resolving]
  - Pharyngitis [Unknown]
  - Skin disorder [Unknown]
  - Mucous membrane disorder [Unknown]
  - Terminal insomnia [Unknown]
  - Poor quality sleep [Unknown]
  - Middle insomnia [Unknown]
  - Anxiety [Unknown]
  - Poor quality sleep [Unknown]
  - Depressed mood [Unknown]
  - Negative thoughts [Unknown]
  - Abnormal dreams [Unknown]
  - Nasopharyngitis [Unknown]
  - Rhinorrhoea [Unknown]
  - Mood swings [Unknown]
  - Depression [Unknown]
  - Somnolence [Unknown]
  - Apathy [Unknown]
  - Weight increased [Unknown]
  - Hyperphagia [Unknown]
  - Exercise lack of [Unknown]
  - Fatigue [Unknown]
